FAERS Safety Report 26047584 (Version 1)
Quarter: 2025Q4

REPORT INFORMATION
  Report Type: Spontaneous
  Country: EU (occurrence: EU)
  Receive Date: 20251114
  Receipt Date: 20251114
  Transmission Date: 20260118
  Serious: Yes (Disabling)
  Sender: BAYER HEALTHCARE LLC
  Company Number: None

PATIENT
  Age: 43 Year
  Sex: Female
  Weight: 67 kg

DRUGS (3)
  1. LORATADINE\PSEUDOEPHEDRINE SULFATE [Interacting]
     Active Substance: LORATADINE\PSEUDOEPHEDRINE SULFATE
     Dosage: UNK UNK, QD
  2. OXYMETAZOLINE HYDROCHLORIDE [Interacting]
     Active Substance: OXYMETAZOLINE HYDROCHLORIDE
     Indication: Nasopharyngitis
     Dosage: 3 DF, QD
     Route: 045
     Dates: start: 20250929, end: 20251001
  3. OXYMETAZOLINE HYDROCHLORIDE [Interacting]
     Active Substance: OXYMETAZOLINE HYDROCHLORIDE
     Indication: Sinusitis

REACTIONS (2)
  - Heart rate increased [Recovering/Resolving]
  - Hyposmia [Recovering/Resolving]

NARRATIVE: CASE EVENT DATE: 20250930
